FAERS Safety Report 8884620 (Version 1)
Quarter: 2012Q4

REPORT INFORMATION
  Report Type: 
  Country: NL (occurrence: NL)
  Receive Date: 20121102
  Receipt Date: 20121102
  Transmission Date: 20130627
  Serious: Yes (Other)
  Sender: FDA-Public Use
  Company Number: NL-PFIZER INC-2012270362

PATIENT
  Sex: Female

DRUGS (11)
  1. DEPO-PROVERA [Suspect]
     Indication: CONTRACEPTION
     Dosage: 150 mg, once every 3 months
     Dates: start: 20100620, end: 20121005
  2. ZYPREXA [Concomitant]
     Dosage: 5 mg, 4x/day
     Dates: start: 20081115
  3. CLONIDINE [Concomitant]
     Dosage: 0.15 mg, 3x/day
     Dates: start: 20080815
  4. NEXIUM [Concomitant]
     Dosage: 20 mg, 1x/day
     Dates: start: 20120305
  5. PROMETHAZINE [Concomitant]
     Dosage: 25 mg, 2x/day
     Dates: start: 20080808
  6. CISORDINOL [Concomitant]
     Dosage: 2 mg, 1x/day
     Dates: start: 20080121
  7. OXAZEPAM [Concomitant]
     Dosage: 25 mg, as needed
     Dates: start: 20120712
  8. TEMAZEPAM [Concomitant]
     Dosage: 20 mg, 1x/day
     Dates: start: 20090905
  9. SALBUTAMOL [Concomitant]
     Dosage: 1 DF, 2x/day
     Dates: start: 20070803
  10. FLIXOTIDE [Concomitant]
     Dosage: as needed
  11. ZINC OXIDE [Concomitant]
     Dosage: as needed
     Dates: start: 20100310

REACTIONS (1)
  - Facial paresis [Unknown]
